FAERS Safety Report 16677499 (Version 2)
Quarter: 2019Q3

REPORT INFORMATION
  Report Type: Spontaneous
  Country: ZA (occurrence: ZA)
  Receive Date: 20190807
  Receipt Date: 20190903
  Transmission Date: 20191004
  Serious: Yes (Other)
  Sender: FDA-Public Use
  Company Number: ZA-MYLANLABS-2019M1072511

PATIENT
  Age: 33 Year
  Sex: Female
  Weight: 51 kg

DRUGS (21)
  1. DELAMANID [Suspect]
     Active Substance: DELAMANID
     Dosage: 100 MILLIGRAM, BID
     Route: 065
     Dates: start: 201905, end: 2019
  2. EMTRICITABINE/TENOFOVIR/TENOFOVIR DISOPROXIL FUMARATE [Suspect]
     Active Substance: EMTRICITABINE\TENOFOVIR DISOPROXIL FUMARATE
     Indication: ANTIRETROVIRAL THERAPY
     Dosage: UNK
     Dates: start: 20190304, end: 20190430
  3. ISONIAZID. [Suspect]
     Active Substance: ISONIAZID
     Dosage: 600 MILLIGRAM, QD
     Route: 048
     Dates: start: 20190513, end: 2019
  4. TERIZIDONE [Suspect]
     Active Substance: TERIZIDONE
     Dosage: 500 MILLIGRAM, QD
     Route: 048
     Dates: start: 201905
  5. EMTRICITABINE/TENOFOVIR/TENOFOVIR DISOPROXIL FUMARATE [Suspect]
     Active Substance: EMTRICITABINE\TENOFOVIR DISOPROXIL FUMARATE
     Dosage: UNK
     Dates: start: 20190516
  6. BEDAQUILINE [Suspect]
     Active Substance: BEDAQUILINE
     Dosage: 200 MILLIGRAM, 3XW
     Dates: start: 201905, end: 2019
  7. LINEZOLID. [Suspect]
     Active Substance: LINEZOLID
     Indication: TUBERCULOSIS
     Dosage: 600 MILLIGRAM
     Route: 048
     Dates: start: 20190211, end: 20190502
  8. ETHAMBUTOL [Concomitant]
     Active Substance: ETHAMBUTOL HYDROCHLORIDE
     Indication: TUBERCULOSIS
     Dosage: UNK
     Dates: start: 20190211
  9. NEVIRAPINE. [Suspect]
     Active Substance: NEVIRAPINE
     Indication: ANTIRETROVIRAL THERAPY
     Dosage: 200 MILLIGRAM, BID
     Route: 048
     Dates: start: 20190304, end: 20190430
  10. ATAZANAVIR W/RITONAVIR [Concomitant]
     Active Substance: ATAZANAVIR\RITONAVIR
     Indication: ANTIRETROVIRAL THERAPY
     Dosage: UNK
  11. ATAZANAVIR W/RITONAVIR [Concomitant]
     Active Substance: ATAZANAVIR\RITONAVIR
     Dosage: UNK
     Dates: start: 20190516
  12. BEDAQUILINE [Suspect]
     Active Substance: BEDAQUILINE
     Indication: TUBERCULOSIS
     Dosage: 400 MILLIGRAM, QD
     Route: 065
     Dates: start: 20190211, end: 201902
  13. LEVOFLOXACIN. [Concomitant]
     Active Substance: LEVOFLOXACIN
     Indication: TUBERCULOSIS
     Dosage: UNK
     Dates: start: 20190211
  14. CLOFAZIMINE [Suspect]
     Active Substance: CLOFAZIMINE
     Indication: TUBERCULOSIS
     Dosage: 100 MILLIGRAM, QD
     Route: 048
     Dates: start: 20190211, end: 20190502
  15. DELAMANID [Suspect]
     Active Substance: DELAMANID
     Indication: TUBERCULOSIS
     Dosage: 100 MILLIGRAM, BID
     Route: 065
     Dates: start: 20190313, end: 20190502
  16. PYRAZINAMIDE. [Suspect]
     Active Substance: PYRAZINAMIDE
     Indication: TUBERCULOSIS
     Dosage: 1.75 GRAM, QD
     Dates: start: 20190211, end: 20190329
  17. BEDAQUILINE [Suspect]
     Active Substance: BEDAQUILINE
     Dosage: 200 MILLIGRAM, 3XW
     Dates: start: 201902, end: 20190502
  18. ISONIAZID. [Suspect]
     Active Substance: ISONIAZID
     Indication: TUBERCULOSIS
     Dosage: 600 MILLIGRAM, QD
     Route: 048
     Dates: start: 20190211, end: 20190430
  19. TERIZIDONE [Suspect]
     Active Substance: TERIZIDONE
     Indication: TUBERCULOSIS
     Dosage: 500 MILLIGRAM, QD
     Route: 048
     Dates: start: 20190313, end: 20190502
  20. LINEZOLID. [Suspect]
     Active Substance: LINEZOLID
     Dosage: 600 MILLIGRAM
     Route: 048
     Dates: start: 201905
  21. CLOFAZIMINE [Suspect]
     Active Substance: CLOFAZIMINE
     Dosage: 100 MILLIGRAM, QD
     Route: 048
     Dates: start: 201905

REACTIONS (6)
  - Hypokalaemia [Unknown]
  - Weight decreased [Unknown]
  - Drug-induced liver injury [Recovering/Resolving]
  - Arthralgia [Unknown]
  - Vomiting [Unknown]
  - Blood thyroid stimulating hormone increased [Unknown]

NARRATIVE: CASE EVENT DATE: 20190329
